FAERS Safety Report 16923369 (Version 1)
Quarter: 2019Q4

REPORT INFORMATION
  Report Type: Spontaneous
  Country: US (occurrence: US)
  Receive Date: 20191016
  Receipt Date: 20191016
  Transmission Date: 20200122
  Serious: No
  Sender: FDA-Public Use
  Company Number: US-TEVA-2019-US-1121156

PATIENT
  Sex: Female

DRUGS (4)
  1. WARFARIN TEVA [Suspect]
     Active Substance: WARFARIN SODIUM
     Indication: EMBOLISM
     Route: 065
     Dates: start: 2009
  2. GLUCOSAMINE [Concomitant]
     Active Substance: GLUCOSAMINE
  3. WARFARIN TEVA [Suspect]
     Active Substance: WARFARIN SODIUM
     Route: 065
     Dates: start: 2009
  4. VITAMIN D [Concomitant]
     Active Substance: VITAMIN D NOS

REACTIONS (2)
  - Wrong technique in product usage process [Unknown]
  - International normalised ratio increased [Unknown]

NARRATIVE: CASE EVENT DATE: 20191001
